FAERS Safety Report 6601029-5 (Version None)
Quarter: 2010Q1

REPORT INFORMATION
  Report Type: 
  Country: None (occurrence: None)
  Receive Date: 20100225
  Receipt Date: 20100216
  Transmission Date: 20100710
  Serious: Yes (Other)
  Sender: FDA-Public Use
  Company Number: US-JNJFOC-20100207342

PATIENT
  Sex: Female
  Weight: 77.11 kg

DRUGS (9)
  1. FENTANYL [Suspect]
     Indication: PAIN
     Route: 062
  2. FENTANYL [Suspect]
     Route: 062
  3. FENTANYL [Suspect]
     Route: 062
  4. FENTANYL [Suspect]
     Indication: PAIN
     Route: 062
  5. FENTANYL [Suspect]
     Route: 062
  6. BLOCADREN [Concomitant]
     Indication: MITRAL VALVE PROLAPSE
     Route: 048
  7. ACYCLOVIR [Concomitant]
     Indication: HEPATIC LESION
     Route: 048
  8. ZETIA [Concomitant]
     Indication: BLOOD CHOLESTEROL
     Route: 048
  9. ZOCOR [Concomitant]
     Indication: BLOOD CHOLESTEROL
     Route: 048

REACTIONS (6)
  - CHOLELITHIASIS [None]
  - DIARRHOEA [None]
  - DRUG INEFFECTIVE [None]
  - LIVER FUNCTION TEST ABNORMAL [None]
  - MUSCLE SPASMS [None]
  - PRODUCT QUALITY ISSUE [None]
